FAERS Safety Report 6358062-0 (Version None)
Quarter: 2009Q3

REPORT INFORMATION
  Report Type: 
  Country: None (occurrence: None)
  Receive Date: 20090916
  Receipt Date: 20090909
  Transmission Date: 20100115
  Serious: Yes (Hospitalization)
  Sender: FDA-Public Use
  Company Number: A0807102A

PATIENT
  Age: 62 Year
  Sex: Male
  Weight: 88.9 kg

DRUGS (5)
  1. MELPHALAN [Suspect]
     Indication: MULTIPLE MYELOMA
     Dosage: 18MG PER DAY
     Route: 048
     Dates: start: 20090626, end: 20090828
  2. VELCADE [Suspect]
     Indication: MULTIPLE MYELOMA
     Dosage: 2.8MG PER DAY
     Route: 042
     Dates: start: 20090626, end: 20090831
  3. PREDNISONE [Suspect]
     Indication: MULTIPLE MYELOMA
     Dosage: 130MG PER DAY
     Route: 048
     Dates: start: 20090626, end: 20090831
  4. ZOFRAN [Concomitant]
     Indication: NAUSEA
  5. PHENERGAN [Concomitant]
     Indication: NAUSEA

REACTIONS (3)
  - ABDOMINAL PAIN [None]
  - NAUSEA [None]
  - NO THERAPEUTIC RESPONSE [None]
